FAERS Safety Report 7286668-3 (Version None)
Quarter: 2011Q1

REPORT INFORMATION
  Report Type: 
  Country: None (occurrence: None)
  Receive Date: 20110210
  Receipt Date: 20110207
  Transmission Date: 20110831
  Serious: Yes (Other)
  Sender: FDA-Public Use
  Company Number: CA-PFIZER INC-2010018557

PATIENT
  Age: 30 Year
  Sex: Male

DRUGS (3)
  1. CHAMPIX [Suspect]
     Indication: SMOKING CESSATION THERAPY
     Dosage: AS DIRECTED
     Dates: start: 20080101, end: 20080101
  2. LOVAZA [Concomitant]
     Dosage: UNK
  3. CHAMPIX [Suspect]
     Dosage: 1 MG, 2X/DAY
     Dates: start: 20080201

REACTIONS (16)
  - PRURITUS GENERALISED [None]
  - SKIN BURNING SENSATION [None]
  - PSYCHOMOTOR HYPERACTIVITY [None]
  - INCOHERENT [None]
  - DYSKINESIA [None]
  - LACRIMAL DISORDER [None]
  - DELUSION [None]
  - INSOMNIA [None]
  - AGITATION [None]
  - DECREASED APPETITE [None]
  - PARANOIA [None]
  - AGGRESSION [None]
  - OBSESSIVE THOUGHTS [None]
  - SUICIDAL IDEATION [None]
  - VERBAL ABUSE [None]
  - CONFUSIONAL STATE [None]
